FAERS Safety Report 5828141-2 (Version None)
Quarter: 2008Q3

REPORT INFORMATION
  Report Type: 
  Country: None (occurrence: None)
  Receive Date: 20080731
  Receipt Date: 20080722
  Transmission Date: 20090109
  Serious: Yes (Other)
  Sender: FDA-Public Use
  Company Number: US-JNJFOC-20080706261

PATIENT
  Sex: Female
  Weight: 90.72 kg

DRUGS (1)
  1. DURAGESIC-100 [Suspect]
     Indication: PAIN
     Dosage: 2X 75 UG/HR PATCHES
     Route: 062

REACTIONS (6)
  - AMENORRHOEA [None]
  - ANOVULATORY CYCLE [None]
  - DRUG DOSE OMISSION [None]
  - DYSMENORRHOEA [None]
  - INAPPROPRIATE SCHEDULE OF DRUG ADMINISTRATION [None]
  - PAIN [None]
